FAERS Safety Report 6303385-4 (Version None)
Quarter: 2009Q3

REPORT INFORMATION
  Report Type: 
  Country: None (occurrence: None)
  Receive Date: 20090810
  Receipt Date: 20090803
  Transmission Date: 20100115
  Serious: Yes (Other)
  Sender: FDA-Public Use
  Company Number: GB-BRISTOL-MYERS SQUIBB COMPANY-14732184

PATIENT
  Age: 56 Year
  Sex: Male
  Weight: 94 kg

DRUGS (4)
  1. GLUCOPHAGE XR [Suspect]
     Dosage: GLUCOPHAGE XR
     Route: 048
     Dates: start: 20081107, end: 20081114
  2. ATORVASTATIN [Concomitant]
     Indication: HYPERLIPIDAEMIA
     Route: 048
     Dates: start: 20010607
  3. DIAMICRON [Concomitant]
     Route: 048
  4. PIOGLITAZONE HCL [Concomitant]
     Route: 048

REACTIONS (1)
  - AMNESIA [None]
